FAERS Safety Report 12609735 (Version 1)
Quarter: 2016Q3

REPORT INFORMATION
  Report Type: Spontaneous
  Country: US (occurrence: None)
  Receive Date: 20160729
  Receipt Date: 20160729
  Transmission Date: 20161109
  Serious: Yes (Other)
  Sender: FDA-Public Use
  Company Number: None

PATIENT
  Age: 47 Year
  Sex: Female
  Weight: 49.9 kg

DRUGS (1)
  1. TRANSDERM SCOP [Suspect]
     Active Substance: SCOPOLAMINE
     Indication: PROPHYLAXIS AGAINST MOTION SICKNESS

REACTIONS (6)
  - Withdrawal syndrome [None]
  - Motion sickness [None]
  - Labyrinthitis [None]
  - Fatigue [None]
  - Headache [None]
  - Depression [None]

NARRATIVE: CASE EVENT DATE: 20160620
